FAERS Safety Report 8519379-4 (Version None)
Quarter: 2012Q3

REPORT INFORMATION
  Report Type: 
  Country: None (occurrence: None)
  Receive Date: 20120718
  Receipt Date: 20120705
  Transmission Date: 20120928
  Serious: Yes (Death)
  Sender: FDA-Public Use
  Company Number: US-MYLANLABS-2012S1013990

PATIENT
  Age: 6 Decade
  Sex: Male

DRUGS (15)
  1. IDARUBICIN HCL [Suspect]
     Dosage: PART OF FLAG-IDA REGIMEN
     Route: 065
  2. FLUDARABINE PHOSPHATE [Suspect]
     Indication: MYELODYSPLASTIC SYNDROME
     Dosage: PART OF FLAG-IDA REGIMEN
     Route: 065
  3. TRETINOIN [Suspect]
     Indication: ACUTE PROMYELOCYTIC LEUKAEMIA
     Dosage: 45 MG/M2/D; LATER RECEIVED AS MAINTENANCE THERAPY (PETHEMA REGIMEN)
     Route: 048
  4. TRETINOIN [Suspect]
     Dosage: 45 MG/M2/D FOR 15D EVERY 3M (PETHEMA REGIMEN)
     Route: 065
  5. CYTARABINE [Suspect]
     Indication: MYELODYSPLASTIC SYNDROME
     Dosage: PART OF FLAG-IDA REGIMEN
     Route: 065
  6. IDARUBICIN HCL [Suspect]
     Dosage: 12 MG/M2/D FOR 1-M CONSOLIDATION; LATER RECEIVED FLAG-IDA REGIMEN (PETHEMA REGIMEN)
     Route: 065
  7. MERCAPTOPURINE [Suspect]
     Indication: ACUTE PROMYELOCYTIC LEUKAEMIA
     Dosage: 50 MG/M2/D (PETHEMA REGIMEN)
     Route: 065
  8. METHOTREXATE [Suspect]
     Indication: ACUTE PROMYELOCYTIC LEUKAEMIA
     Dosage: 15 MG/M2/W (PETHEMA REGIMEN)
     Route: 065
  9. IDARUBICIN HCL [Suspect]
     Indication: MYELODYSPLASTIC SYNDROME
     Dosage: 12 MG/M2/D ON DAYS 2, 4, 6, 8; LATER RECEIVED DURING CONSOLIDATION (PETHEMA REGIMEN)
     Route: 065
  10. IDARUBICIN HCL [Suspect]
     Dosage: 12 MG/M2/D FOR 1-M CONSOLIDATION; LATER RECEIVED FLAG-IDA REGIMEN (PETHEMA REGIMEN)
     Route: 065
  11. IDARUBICIN HCL [Suspect]
     Dosage: PART OF FLAG-IDA REGIMEN
     Route: 065
  12. MITOXANTRONE [Suspect]
     Indication: ACUTE PROMYELOCYTIC LEUKAEMIA
     Dosage: 10 MG/M2/D ON D1-5 OF 1-M CONSOLIDATION (PETHEMA REGIMEN)
     Route: 065
  13. IDARUBICIN HCL [Suspect]
     Dosage: 5 MG/M2/D ON D1-4 OF 1-M CONSOLIDATION; THEN 12 MG/M2/D (PETHEMA REGIMEN)
     Route: 065
  14. IDARUBICIN HCL [Suspect]
     Indication: ACUTE PROMYELOCYTIC LEUKAEMIA
     Dosage: 12 MG/M2/D ON DAYS 2, 4, 6, 8; LATER RECEIVED DURING CONSOLIDATION (PETHEMA REGIMEN)
     Route: 065
  15. IDARUBICIN HCL [Suspect]
     Dosage: 5 MG/M2/D ON D1-4 OF 1-M CONSOLIDATION; THEN 12 MG/M2/D (PETHEMA REGIMEN)
     Route: 065

REACTIONS (3)
  - TREATMENT RELATED SECONDARY MALIGNANCY [None]
  - MYELODYSPLASTIC SYNDROME [None]
  - ACUTE MYELOID LEUKAEMIA [None]
